FAERS Safety Report 25859449 (Version 1)
Quarter: 2025Q3

REPORT INFORMATION
  Report Type: Spontaneous
  Country: US (occurrence: US)
  Receive Date: 20250929
  Receipt Date: 20250929
  Transmission Date: 20251020
  Serious: No
  Sender: MERCK SHARP & DOHME LLC
  Company Number: US-009507513-2327067

PATIENT
  Sex: Male
  Weight: 68.039 kg

DRUGS (29)
  1. SOTATERCEPT [Suspect]
     Active Substance: SOTATERCEPT
     Indication: Product used for unknown indication
     Route: 065
     Dates: end: 2025
  2. SOTATERCEPT [Suspect]
     Active Substance: SOTATERCEPT
  3. SOTATERCEPT [Suspect]
     Active Substance: SOTATERCEPT
  4. SOTATERCEPT [Suspect]
     Active Substance: SOTATERCEPT
  5. TYVASO [Suspect]
     Active Substance: TREPROSTINIL
     Indication: Pulmonary arterial hypertension
     Dosage: CONCENTRATION: 0.6 MG/ML
     Route: 055
     Dates: start: 20240221
  6. TOPIRAMATE [Concomitant]
     Active Substance: TOPIRAMATE
  7. ROSUVASTATIN CALCIUM [Concomitant]
     Active Substance: ROSUVASTATIN CALCIUM
  8. Senna-S (Docusate sodium, Senna alexandrina) [Concomitant]
  9. NIFEDIPINE [Concomitant]
     Active Substance: NIFEDIPINE
  10. INSULIN LISPRO JUNIOR KWIKPEN [Concomitant]
     Active Substance: INSULIN LISPRO
  11. ATENOLOL [Concomitant]
     Active Substance: ATENOLOL
  12. TOUJEO MAX [Concomitant]
     Active Substance: INSULIN GLARGINE
  13. ESOMEPRAZOLE MAGNESIUM [Concomitant]
     Active Substance: ESOMEPRAZOLE MAGNESIUM
  14. FLUTICASONE PROPIONATE [Concomitant]
     Active Substance: FLUTICASONE PROPIONATE
  15. SPIRONOLACTONE AND HYDROCHLOROTHIAZIDE [Concomitant]
     Active Substance: HYDROCHLOROTHIAZIDE\SPIRONOLACTONE
  16. TORSEMIDE [Concomitant]
     Active Substance: TORSEMIDE
  17. METOLAZONE [Concomitant]
     Active Substance: METOLAZONE
  18. POTASSIUM CHLORIDE [Concomitant]
     Active Substance: POTASSIUM CHLORIDE
  19. OPSUMIT [Concomitant]
     Active Substance: MACITENTAN
  20. BUDESONIDE\FORMOTEROL [Concomitant]
     Active Substance: BUDESONIDE\FORMOTEROL
  21. OXYGEN [Concomitant]
     Active Substance: OXYGEN
  22. ASPIRIN [Concomitant]
     Active Substance: ASPIRIN
  23. SPIRONOLACTONE [Concomitant]
     Active Substance: SPIRONOLACTONE
  24. VITAMIN C [Concomitant]
     Active Substance: ASCORBIC ACID
  25. VITAMIN D3 [Concomitant]
     Active Substance: CHOLECALCIFEROL
  26. SILDENAFIL CITRATE [Concomitant]
     Active Substance: SILDENAFIL CITRATE
  27. FEXOFENADINE HYDROCHLORIDE [Concomitant]
     Active Substance: FEXOFENADINE HYDROCHLORIDE
  28. STOOL SOFTENER (DOCUSATE) [Concomitant]
     Active Substance: DOCUSATE
  29. ASPIRIN [Concomitant]
     Active Substance: ASPIRIN

REACTIONS (1)
  - Haemorrhage [Unknown]
